FAERS Safety Report 24916387 (Version 1)
Quarter: 2025Q1

REPORT INFORMATION
  Report Type: Spontaneous
  Country: US (occurrence: None)
  Receive Date: 20250131
  Receipt Date: 20250131
  Transmission Date: 20250409
  Serious: Yes (Disabling)
  Sender: FDA-CTU
  Company Number: None

PATIENT
  Age: 65 Year
  Sex: Male
  Weight: 117 kg

DRUGS (15)
  1. BELBUCA [Suspect]
     Active Substance: BUPRENORPHINE HYDROCHLORIDE
     Indication: Back pain
     Dosage: OTHER QUANTITY : 1 PATCH(ES)?FREQUENCY : TWICE A DAY?OTHER ROUTE : FOIL PLACED BETWEEN THE TEETH/GUMS AND C?
     Route: 050
     Dates: start: 20240105
  2. DEVICE [Concomitant]
     Active Substance: DEVICE
  3. METFORMIN [Concomitant]
     Active Substance: METFORMIN HYDROCHLORIDE
  4. FUROSEMIDE\POTASSIUM CHLORIDE [Concomitant]
     Active Substance: FUROSEMIDE\POTASSIUM CHLORIDE
  5. TOPROL XL [Concomitant]
     Active Substance: METOPROLOL SUCCINATE
  6. UNSPECIFIED INGREDIENT [Concomitant]
     Active Substance: UNSPECIFIED INGREDIENT
  7. NORTRIPTYLINE [Concomitant]
     Active Substance: NORTRIPTYLINE
  8. ZINC [Concomitant]
     Active Substance: ZINC
  9. PREVACID [Concomitant]
     Active Substance: LANSOPRAZOLE
  10. VITAMINS [Concomitant]
     Active Substance: VITAMINS
  11. LOSARTAN [Concomitant]
     Active Substance: LOSARTAN
  12. Multivatimin [Concomitant]
  13. 5-HTP [Concomitant]
  14. COENZYME Q10 [Concomitant]
     Active Substance: DIETARY SUPPLEMENT\UBIDECARENONE
  15. I-thinine [Concomitant]

REACTIONS (2)
  - Dental restoration failure [None]
  - Application site reaction [None]

NARRATIVE: CASE EVENT DATE: 20241217
